FAERS Safety Report 24707984 (Version 1)
Quarter: 2024Q4

REPORT INFORMATION
  Report Type: Spontaneous
  Country: JP (occurrence: JP)
  Receive Date: 20241206
  Receipt Date: 20241206
  Transmission Date: 20250115
  Serious: Yes (Other)
  Sender: INTERCHEM
  Company Number: JP-HQ SPECIALTY-JP-2024INT000105

PATIENT
  Age: 78 Year
  Sex: Male

DRUGS (4)
  1. DEXMEDETOMIDINE HYDROCHLORIDE [Suspect]
     Active Substance: DEXMEDETOMIDINE HYDROCHLORIDE
     Indication: Sedation
     Dosage: 3 ?G/KG, 1 HR
     Route: 041
  2. DEXMEDETOMIDINE HYDROCHLORIDE [Suspect]
     Active Substance: DEXMEDETOMIDINE HYDROCHLORIDE
     Dosage: 0.4 - 0.5 ?G/KG/H (1HR)
     Route: 041
  3. DEXMEDETOMIDINE HYDROCHLORIDE [Suspect]
     Active Substance: DEXMEDETOMIDINE HYDROCHLORIDE
     Dosage: 0.7 ?G/KG, 1 HR
     Route: 041
  4. NITROUS OXIDE [Concomitant]
     Active Substance: NITROUS OXIDE
     Indication: Anaesthesia
     Dosage: 70 PERCENT
     Route: 055

REACTIONS (2)
  - Oxygen saturation decreased [Unknown]
  - Blood pressure systolic decreased [Unknown]
